FAERS Safety Report 4283534-2 (Version None)
Quarter: 2004Q1

REPORT INFORMATION
  Report Type: 
  Country: None (occurrence: None)
  Receive Date: 20040121
  Receipt Date: 20030410
  Transmission Date: 20041129
  Serious: Yes (Death)
  Sender: FDA-Public Use
  Company Number: A03200300762

PATIENT
  Sex: Male

DRUGS (6)
  1. PLAVIX [Suspect]
     Indication: CATHETER PLACEMENT
     Dosage: ORAL
     Route: 048
     Dates: start: 20020801
  2. CITALOPRAM HYDROBROMIDE [Concomitant]
  3. FINASTERIDE [Concomitant]
  4. RAMIPRIL [Concomitant]
  5. TAMSULOSIN HYDROCHLORIDE [Concomitant]
  6. AMIODARONE HYDROCHLORIDE [Concomitant]

REACTIONS (1)
  - SUBDURAL HAEMATOMA [None]
